FAERS Safety Report 7279693-X (Version None)
Quarter: 2011Q1

REPORT INFORMATION
  Report Type: 
  Country: None (occurrence: None)
  Receive Date: 20110203
  Receipt Date: 20110203
  Transmission Date: 20110831
  Serious: Yes (Life-Threatening, Hospitalization)
  Sender: FDA-Public Use
  Company Number: None

PATIENT
  Sex: Male
  Weight: 102.5129 kg

DRUGS (13)
  1. DOXAZOSIN [Concomitant]
  2. AMLODIPINE [Concomitant]
  3. METFORMIN HCL [Concomitant]
  4. METOPROLOL [Concomitant]
  5. OMEPRAZOLE [Concomitant]
  6. NOVOLOG MIX 70/30 [Concomitant]
  7. ULORIC [Suspect]
     Indication: GOUT
     Dosage: 40MG DAILY PO
     Route: 048
     Dates: start: 20100409, end: 20100903
  8. LASIX [Concomitant]
  9. ASA [Concomitant]
  10. FISH OIL [Concomitant]
  11. COLCHINE [Concomitant]
  12. GEMFIBROZIL [Concomitant]
  13. LIPITOR [Concomitant]

REACTIONS (1)
  - BRAIN STEM INFARCTION [None]
